FAERS Safety Report 7594467 (Version 4)
Quarter: 2014Q1

REPORT INFORMATION
  Report Type: Spontaneous
  Country: US (occurrence: US)
  Receive Date: 20100920
  Receipt Date: 20140110
  Transmission Date: 20141002
  Serious: Yes (Other)
  Sender: FDA-Public Use
  Company Number: US-BAYER-201033755NA

PATIENT
  Age: 22 Year
  Sex: Female
  Weight: 63 kg

DRUGS (5)
  1. YASMIN [Suspect]
     Indication: CONTRACEPTION
     Dosage: UNK UNK, UNK
     Route: 048
     Dates: start: 200309, end: 200809
  2. YASMIN [Suspect]
     Indication: DYSMENORRHOEA
  3. OCELLA [Suspect]
     Indication: PRODUCT USED FOR UNKNOWN INDICATION
     Dosage: UNK UNK, UNK
     Route: 065
     Dates: start: 200809, end: 200810
  4. PRILOSEC [Concomitant]
     Indication: DYSPEPSIA
     Dosage: UNK
     Dates: start: 200709
  5. NEXIUM [Concomitant]
     Dosage: UNK
     Dates: start: 200709

REACTIONS (3)
  - Cholecystitis chronic [None]
  - Gallbladder disorder [None]
  - Abdominal pain [None]
